FAERS Safety Report 4378315-5 (Version None)
Quarter: 2004Q2

REPORT INFORMATION
  Report Type: 
  Country: None (occurrence: None)
  Receive Date: 20040609
  Receipt Date: 20040526
  Transmission Date: 20050107
  Serious: Yes (Other)
  Sender: FDA-Public Use
  Company Number: 200412617BCC

PATIENT
  Sex: Female
  Weight: 89.8122 kg

DRUGS (4)
  1. ASPIRIN [Suspect]
     Indication: BACK PAIN
     Dosage: 500 MG, QD, ORAL
     Route: 048
  2. PROZAC [Concomitant]
  3. KLONOPIN [Concomitant]
  4. PRINIVIL [Concomitant]

REACTIONS (3)
  - AMNESIA [None]
  - ASTHENIA [None]
  - HEPATIC CIRRHOSIS [None]
